FAERS Safety Report 10915003 (Version 1)
Quarter: 2015Q1

REPORT INFORMATION
  Report Type: Spontaneous
  Country: DE (occurrence: DE)
  Receive Date: 20150314
  Receipt Date: 20150314
  Transmission Date: 20150721
  Serious: Yes (Hospitalization)
  Sender: FDA-Public Use
  Company Number: DE-009507513-1503DEU006681

PATIENT
  Sex: Female

DRUGS (3)
  1. VELMETIA [Suspect]
     Active Substance: METFORMIN\SITAGLIPTIN
     Dosage: 50/1000 MG TWICE DAILY, TOTAL DAILY DOSE 100/2000 MGUNK, BID
     Route: 048
     Dates: start: 20150301
  2. VELMETIA [Suspect]
     Active Substance: METFORMIN\SITAGLIPTIN
     Indication: TYPE 2 DIABETES MELLITUS
     Dosage: 50/1000 MG TWICE DAILY, TOTAL DAILY DOSE 100/2000 MG
     Route: 048
     Dates: start: 201502, end: 201502
  3. LITHIUM [Concomitant]
     Active Substance: LITHIUM CARBONATE
     Indication: BIPOLAR DISORDER
     Dosage: UNK
     Dates: end: 201502

REACTIONS (2)
  - Gait disturbance [Recovered/Resolved]
  - Toxicity to various agents [Recovered/Resolved]

NARRATIVE: CASE EVENT DATE: 201502
